FAERS Safety Report 5261208-9 (Version None)
Quarter: 2007Q1

REPORT INFORMATION
  Report Type: 
  Country: None (occurrence: None)
  Receive Date: 20070309
  Receipt Date: 20070226
  Transmission Date: 20070707
  Serious: Yes (Hospitalization)
  Sender: FDA-Public Use
  Company Number: US-PFIZER INC-2007015202

PATIENT
  Sex: Male
  Weight: 68 kg

DRUGS (3)
  1. TROVAFLOXACIN [Suspect]
     Indication: MENINGITIS BACTERIAL
     Route: 042
     Dates: start: 20061226, end: 20070105
  2. KEPPRA [Suspect]
     Indication: CONVULSION PROPHYLAXIS
     Route: 048
     Dates: start: 20061227, end: 20070108
  3. CEFEPIME [Suspect]
     Indication: MENINGITIS BACTERIAL
     Route: 042
     Dates: start: 20061226, end: 20070105

REACTIONS (7)
  - GASTRIC ULCER [None]
  - NAUSEA [None]
  - PYREXIA [None]
  - RENAL FAILURE [None]
  - STEVENS-JOHNSON SYNDROME [None]
  - VOMITING [None]
  - WHITE BLOOD CELL COUNT INCREASED [None]
